FAERS Safety Report 9663821 (Version 1)
Quarter: 2013Q4

REPORT INFORMATION
  Report Type: Spontaneous
  Country: US (occurrence: None)
  Receive Date: 20131030
  Receipt Date: 20131030
  Transmission Date: 20140711
  Serious: No
  Sender: FDA-Public Use
  Company Number: None

PATIENT
  Age: 53 Year
  Sex: Female
  Weight: 68.04 kg

DRUGS (8)
  1. LINZESS [Suspect]
     Indication: HAEMATOCHEZIA
     Dosage: 145 MCG, 1 CAPSULE, ONCE, BY MOUTH
     Route: 048
     Dates: start: 20130906, end: 20130916
  2. ALPRAZOLAM 2 MG [Concomitant]
  3. RANITIDINE 300MG [Concomitant]
  4. OXYBUTYNIN ER 15MG [Concomitant]
  5. FERROUS SULFATE 325MG [Concomitant]
  6. VITAMIN D 5000 IU [Concomitant]
  7. VITAMIN B12 1500 MG [Concomitant]
  8. SELENIUM 200MCG [Concomitant]

REACTIONS (3)
  - Vision blurred [None]
  - Headache [None]
  - Constipation [None]
